FAERS Safety Report 14327192 (Version 2)
Quarter: 2018Q1

REPORT INFORMATION
  Report Type: Report from Study
  Country: CA (occurrence: CA)
  Receive Date: 20171227
  Receipt Date: 20180125
  Transmission Date: 20180509
  Serious: Yes (Hospitalization, Other)
  Sender: FDA-Public Use
  Company Number: PHHY2017CA040994

PATIENT
  Age: 52 Year
  Sex: Male

DRUGS (12)
  1. COSENTYX [Suspect]
     Active Substance: SECUKINUMAB
     Dosage: 300 MG, QMO
     Route: 058
     Dates: start: 20170728
  2. COSENTYX [Suspect]
     Active Substance: SECUKINUMAB
     Dosage: UNK
     Route: 058
     Dates: start: 201712
  3. COSENTYX [Suspect]
     Active Substance: SECUKINUMAB
     Dosage: 300 MG, QMO
     Route: 058
     Dates: start: 20170509
  4. COSENTYX [Suspect]
     Active Substance: SECUKINUMAB
     Indication: PSORIATIC ARTHROPATHY
     Dosage: 300 MG, QW
     Route: 058
     Dates: start: 20170306
  5. COSENTYX [Suspect]
     Active Substance: SECUKINUMAB
     Indication: PSORIASIS
     Dosage: 300 MG, QW
     Route: 058
     Dates: start: 20170320
  6. COSENTYX [Suspect]
     Active Substance: SECUKINUMAB
     Dosage: 300 MG, QMO
     Route: 058
     Dates: start: 20170606
  7. COSENTYX [Suspect]
     Active Substance: SECUKINUMAB
     Dosage: 300 MG, QMO
     Route: 058
     Dates: start: 20170920
  8. COSENTYX [Suspect]
     Active Substance: SECUKINUMAB
     Dosage: 300 MG, QMO
     Route: 058
     Dates: start: 20170823
  9. COSENTYX [Suspect]
     Active Substance: SECUKINUMAB
     Dosage: 300 MG, QMO
     Route: 058
     Dates: start: 20171018
  10. COSENTYX [Suspect]
     Active Substance: SECUKINUMAB
     Dosage: 300 MG, QW
     Route: 058
     Dates: start: 20170403, end: 20170411
  11. COSENTYX [Suspect]
     Active Substance: SECUKINUMAB
     Dosage: 300 MG, QMO
     Route: 058
     Dates: start: 20170705
  12. COSENTYX [Suspect]
     Active Substance: SECUKINUMAB
     Dosage: 300 MG, QMO
     Route: 058
     Dates: start: 20171115

REACTIONS (32)
  - Fatigue [Unknown]
  - Back pain [Unknown]
  - Eye swelling [Unknown]
  - Inflammation [Unknown]
  - Discomfort [Unknown]
  - Infection [Unknown]
  - Nasopharyngitis [Unknown]
  - Conjunctivitis [Recovering/Resolving]
  - Cough [Recovered/Resolved]
  - Eye irritation [Unknown]
  - Angina pectoris [Unknown]
  - Eyelid oedema [Unknown]
  - Dizziness [Unknown]
  - Sleep disorder [Unknown]
  - Myalgia [Unknown]
  - Blood pressure increased [Recovering/Resolving]
  - Paraesthesia [Unknown]
  - Tongue disorder [Unknown]
  - Vomiting [Recovered/Resolved]
  - Chest discomfort [Unknown]
  - Pyrexia [Unknown]
  - Erythema of eyelid [Unknown]
  - Arthralgia [Recovered/Resolved]
  - Eczema [Unknown]
  - Purulent discharge [Not Recovered/Not Resolved]
  - Wound [Not Recovered/Not Resolved]
  - Chest pain [Unknown]
  - Hypoaesthesia [Unknown]
  - Malaise [Unknown]
  - Nausea [Recovered/Resolved]
  - Ocular hyperaemia [Unknown]
  - Skin lesion [Unknown]

NARRATIVE: CASE EVENT DATE: 201703
